FAERS Safety Report 19802722 (Version 2)
Quarter: 2021Q4

REPORT INFORMATION
  Report Type: Report from Study
  Country: CA (occurrence: CA)
  Receive Date: 20210908
  Receipt Date: 20211027
  Transmission Date: 20220304
  Serious: Yes (Hospitalization, Other)
  Sender: FDA-Public Use
  Company Number: CA-JNJFOC-20210906737

PATIENT
  Age: 5 Decade
  Sex: Male

DRUGS (2)
  1. REMICADE [Suspect]
     Active Substance: INFLIXIMAB
     Indication: Crohn^s disease
     Dosage: ALSO RECEIVED ON 09-AUG-2021
     Route: 042
     Dates: start: 20210723
  2. REMICADE [Suspect]
     Active Substance: INFLIXIMAB
     Route: 042
     Dates: start: 2021

REACTIONS (5)
  - Gastrointestinal fistula [Not Recovered/Not Resolved]
  - Bacteraemia [Not Recovered/Not Resolved]
  - Bowel movement irregularity [Unknown]
  - Off label use [Unknown]
  - Product use issue [Unknown]

NARRATIVE: CASE EVENT DATE: 20210101
